FAERS Safety Report 9952961 (Version 1)
Quarter: 2014Q1

REPORT INFORMATION
  Report Type: Report from Study
  Country: US (occurrence: US)
  Receive Date: 20140304
  Receipt Date: 20140304
  Transmission Date: 20141002
  Serious: No
  Sender: FDA-Public Use
  Company Number: US-ABBVIE-13P-163-1078485-00

PATIENT
  Age: 52 Year
  Sex: Female

DRUGS (8)
  1. HUMIRA [Suspect]
     Indication: RHEUMATOID ARTHRITIS
     Dosage: INITIAL DOSE ONLY
     Dates: start: 20130228, end: 20130228
  2. PLAQUENIL [Concomitant]
     Indication: RHEUMATOID ARTHRITIS
  3. LISINOPRIL [Concomitant]
     Indication: BLOOD PRESSURE
  4. METOPROLOL [Concomitant]
     Indication: BLOOD PRESSURE
  5. METOPROLOL [Concomitant]
     Indication: SUPRAVENTRICULAR TACHYCARDIA
  6. DEXILANT [Concomitant]
     Indication: GASTROOESOPHAGEAL REFLUX DISEASE
  7. VITAMIN D NOS [Concomitant]
     Indication: VITAMIN D DEFICIENCY
  8. VITAMIN B12 (CYANOCOBALAMIN AND ANALOGUES) [Concomitant]
     Indication: VITAMIN B COMPLEX DEFICIENCY
     Dosage: DAILY

REACTIONS (2)
  - Fibromyalgia [Not Recovered/Not Resolved]
  - Drug ineffective [Not Recovered/Not Resolved]
